FAERS Safety Report 10916423 (Version 5)
Quarter: 2015Q2

REPORT INFORMATION
  Report Type: Spontaneous
  Country: US (occurrence: US)
  Receive Date: 20150316
  Receipt Date: 20150623
  Transmission Date: 20150821
  Serious: Yes (Hospitalization, Other)
  Sender: FDA-Public Use
  Company Number: US-009507513-1012USA02289

PATIENT
  Sex: Female

DRUGS (5)
  1. VITAMINS (UNSPECIFIED) [Concomitant]
     Active Substance: VITAMINS
     Indication: ROUTINE HEALTH MAINTENANCE
     Dosage: UNK
     Route: 048
     Dates: start: 1996
  2. FOSAMAX [Suspect]
     Active Substance: ALENDRONATE SODIUM
     Indication: BONE DENSITY DECREASED
     Dosage: UNK
     Route: 048
     Dates: start: 1999
  3. BONIVA [Suspect]
     Active Substance: IBANDRONATE SODIUM
     Indication: BONE DENSITY DECREASED
     Dosage: 150 MG, QM
     Route: 048
     Dates: start: 2005, end: 2009
  4. FOSAMAX [Suspect]
     Active Substance: ALENDRONATE SODIUM
     Dosage: 70 MG, QW
     Route: 048
     Dates: start: 20030301, end: 200512
  5. CALCIUM (UNSPECIFIED) (+) VITAMIN D (UNSPECIFIED) [Concomitant]
     Active Substance: CALCIUM CARBONATE\VITAMIN D
     Indication: ROUTINE HEALTH MAINTENANCE
     Dosage: 1200 MG, QD
     Dates: start: 1996

REACTIONS (10)
  - Lumbar spinal stenosis [Unknown]
  - Sciatica [Unknown]
  - Trendelenburg^s symptom [Recovering/Resolving]
  - Femur fracture [Unknown]
  - Back pain [Unknown]
  - Radicular pain [Unknown]
  - Spinal osteoarthritis [Unknown]
  - Cardiac disorder [Unknown]
  - Foot fracture [Unknown]
  - Bursitis [Unknown]

NARRATIVE: CASE EVENT DATE: 20030520
